FAERS Safety Report 7940583-8 (Version None)
Quarter: 2011Q4

REPORT INFORMATION
  Report Type: 
  Country: None (occurrence: None)
  Receive Date: 20111128
  Receipt Date: 20111117
  Transmission Date: 20120403
  Serious: Yes (Life-Threatening, Hospitalization, Congenital Anomaly, Other)
  Sender: FDA-Public Use
  Company Number: ZA-ELI_LILLY_AND_COMPANY-ZA201111007539

PATIENT

DRUGS (1)
  1. HUMALOG [Suspect]
     Indication: DIABETES MELLITUS
     Dosage: 4 IU, TID
     Route: 064
     Dates: start: 20110520

REACTIONS (6)
  - HEART DISEASE CONGENITAL [None]
  - CARDIOMEGALY [None]
  - CONVULSION [None]
  - NEONATAL ASPIRATION [None]
  - FOETAL EXPOSURE DURING PREGNANCY [None]
  - MENINGITIS [None]
